FAERS Safety Report 19363418 (Version 2)
Quarter: 2022Q1

REPORT INFORMATION
  Report Type: Report from Study
  Country: CO (occurrence: CO)
  Receive Date: 20210602
  Receipt Date: 20220103
  Transmission Date: 20220423
  Serious: Yes (Hospitalization, Other)
  Sender: FDA-Public Use
  Company Number: CO-BRISTOL-MYERS SQUIBB COMPANY-BMS-2021-018839

PATIENT
  Age: 76 Year
  Sex: Male
  Weight: 83 kg

DRUGS (5)
  1. ABATACEPT [Suspect]
     Active Substance: ABATACEPT
     Indication: Rheumatoid arthritis
     Dosage: 750 MILLIGRAM, Q4WK
     Route: 042
     Dates: start: 20191227, end: 20210115
  2. METFORMIN [Concomitant]
     Active Substance: METFORMIN HYDROCHLORIDE
     Indication: Product used for unknown indication
     Route: 065
  3. ENALAPRIL [Concomitant]
     Active Substance: ENALAPRIL
     Indication: Product used for unknown indication
     Dosage: 20 MILLIGRAM, QD
     Route: 065
  4. LEFLUNOMIDE [Concomitant]
     Active Substance: LEFLUNOMIDE
     Indication: Product used for unknown indication
     Route: 065
  5. CALCIUM [Concomitant]
     Active Substance: CALCIUM
     Indication: Product used for unknown indication
     Route: 065

REACTIONS (7)
  - Arthropathy [Recovering/Resolving]
  - Syncope [Unknown]
  - Dysuria [Recovering/Resolving]
  - Arthralgia [Recovering/Resolving]
  - Swelling [Unknown]
  - Fall [Unknown]
  - Arthritis [Recovering/Resolving]

NARRATIVE: CASE EVENT DATE: 20201109
